FAERS Safety Report 9777623 (Version 1)
Quarter: 2013Q4

REPORT INFORMATION
  Report Type: Report from Study
  Country: US (occurrence: US)
  Receive Date: 20131222
  Receipt Date: 20131222
  Transmission Date: 20140711
  Serious: Yes (Other)
  Sender: FDA-Public Use
  Company Number: US-ROCHE-1320048

PATIENT
  Sex: Male
  Weight: 17.2 kg

DRUGS (2)
  1. NUTROPIN AQ [Suspect]
     Indication: HYPOPITUITARISM
     Route: 058
     Dates: end: 20131119
  2. NUTROPIN AQ [Suspect]
     Route: 058
     Dates: start: 20131119

REACTIONS (3)
  - Headache [Unknown]
  - Increased appetite [Unknown]
  - Tooth loss [Unknown]
